FAERS Safety Report 7632004-X (Version None)
Quarter: 2011Q3

REPORT INFORMATION
  Report Type: 
  Country: None (occurrence: None)
  Receive Date: 20110725
  Receipt Date: 20101006
  Transmission Date: 20111222
  Serious: No
  Sender: FDA-Public Use
  Company Number: US-BRISTOL-MYERS SQUIBB COMPANY-12720975

PATIENT
  Age: 80 Year
  Sex: Female
  Weight: 67 kg

DRUGS (7)
  1. VICODIN [Concomitant]
     Indication: MIGRAINE
  2. CELEBREX [Concomitant]
  3. COUMADIN [Suspect]
     Indication: ATRIAL FIBRILLATION
     Dosage: RECENT DOSE IS 2.5MG DAILY
     Route: 048
     Dates: start: 20020606
  4. AMIODARONE HCL [Concomitant]
  5. TYLENOL-500 [Concomitant]
  6. BETAPACE [Concomitant]
  7. MULTI-VITAMIN [Concomitant]

REACTIONS (5)
  - INTERNATIONAL NORMALISED RATIO DECREASED [None]
  - ABDOMINAL DISCOMFORT [None]
  - WART EXCISION [None]
  - ASTHENIA [None]
  - ECCHYMOSIS [None]
